FAERS Safety Report 6023587-4 (Version None)
Quarter: 2008Q4

REPORT INFORMATION
  Report Type: 
  Country: None (occurrence: None)
  Receive Date: 20081226
  Receipt Date: 20081226
  Transmission Date: 20090506
  Serious: Yes (Other)
  Sender: FDA-Public Use
  Company Number: None

PATIENT
  Age: 59 Year
  Sex: Male
  Weight: 57.6068 kg

DRUGS (1)
  1. VIAGRA [Suspect]
     Indication: CARDIOVASCULAR DISORDER
     Dosage: 50 EVERY OTHER DAY PO
     Route: 048
     Dates: start: 20081219, end: 20081224

REACTIONS (2)
  - LACTOSE INTOLERANCE [None]
  - REACTION TO DRUG EXCIPIENTS [None]
